FAERS Safety Report 6095218-9 (Version None)
Quarter: 2009Q1

REPORT INFORMATION
  Report Type: 
  Country: None (occurrence: None)
  Receive Date: 20090227
  Receipt Date: 20080214
  Transmission Date: 20090719
  Serious: No
  Sender: FDA-Public Use
  Company Number: A0709661A

PATIENT
  Age: 45 Year
  Sex: Female

DRUGS (5)
  1. LAMICTAL [Suspect]
     Indication: EMOTIONAL DISORDER
     Route: 048
     Dates: start: 20071201, end: 20080101
  2. BUSPAR [Concomitant]
  3. KLONOPIN [Concomitant]
  4. LEVOTHYROXINE SODIUM [Concomitant]
  5. CLOZARIL [Concomitant]

REACTIONS (3)
  - BURNING SENSATION [None]
  - PRURITUS [None]
  - RASH [None]
